FAERS Safety Report 21057110 (Version 1)
Quarter: 2022Q3

REPORT INFORMATION
  Report Type: Spontaneous
  Country: US (occurrence: None)
  Receive Date: 20220707
  Receipt Date: 20220707
  Transmission Date: 20221027
  Serious: Yes (unspecified)
  Sender: FDA-Public Use
  Company Number: None

PATIENT
  Age: 65 Year
  Sex: Female
  Weight: 101.25 kg

DRUGS (5)
  1. CERAVE AM FACIAL MOISTURIZING BROAD SPECTRUM SPF 30 SUNSCREEN [Suspect]
     Active Substance: HOMOSALATE\MERADIMATE\OCTINOXATE\OCTOCRYLENE\ZINC OXIDE
     Indication: Prophylaxis against solar radiation
     Dosage: OTHER STRENGTH : UNKNOWN;?OTHER FREQUENCY : I USED IT ONCE ONL;?
     Route: 061
     Dates: start: 20220704, end: 20220704
  2. OLMESARTAN MEDOXOMIL [Concomitant]
     Active Substance: OLMESARTAN MEDOXOMIL
  3. VITMAIN C [Concomitant]
  4. CRANBERRY [Concomitant]
     Active Substance: CRANBERRY
  5. CALCIUM [Concomitant]
     Active Substance: CALCIUM

REACTIONS (8)
  - Application site erythema [None]
  - Application site swelling [None]
  - Application site pain [None]
  - Application site burn [None]
  - Skin exfoliation [None]
  - Eyelid disorder [None]
  - Lip exfoliation [None]
  - Suspected product quality issue [None]

NARRATIVE: CASE EVENT DATE: 20220704
